FAERS Safety Report 4934816-X (Version None)
Quarter: 2006Q1

REPORT INFORMATION
  Report Type: 
  Country: None (occurrence: None)
  Receive Date: 20060307
  Receipt Date: 20050203
  Transmission Date: 20060701
  Serious: Yes (Hospitalization)
  Sender: FDA-Public Use
  Company Number: US-MERCK-0502USA00480

PATIENT
  Age: 62 Year
  Sex: Female
  Weight: 98 kg

DRUGS (23)
  1. VIOXX [Suspect]
     Indication: ARTHRALGIA
     Route: 048
     Dates: start: 20010401, end: 20011114
  2. VIOXX [Suspect]
     Route: 048
     Dates: start: 20010101
  3. VIOXX [Suspect]
     Indication: ASTHENIA
     Route: 048
     Dates: start: 20010401, end: 20011114
  4. VIOXX [Suspect]
     Route: 048
     Dates: start: 20010101
  5. HUMULIN [Concomitant]
     Indication: DIABETES MELLITUS
     Route: 058
  6. GLUCOPHAGE [Concomitant]
     Indication: DIABETES MELLITUS
     Route: 048
  7. LOPRESSOR [Concomitant]
     Route: 048
  8. ACCUPRIL [Concomitant]
     Route: 048
  9. ZOCOR [Concomitant]
     Indication: HYPERTENSION
     Route: 048
  10. HYDROCHLOROTHIAZIDE [Concomitant]
     Route: 048
  11. NEXIUM [Concomitant]
     Route: 048
  12. ESTRADIOL [Concomitant]
     Route: 048
  13. ULTRAM [Concomitant]
     Route: 048
  14. ASPIRIN [Concomitant]
     Route: 048
  15. NITROGLYCERIN [Concomitant]
     Route: 065
  16. [THERAPY UNSPECIFIED] [Concomitant]
     Route: 048
  17. BEXTRA [Concomitant]
     Route: 048
  18. LIPITOR [Concomitant]
     Route: 048
  19. GEMFIBROZIL [Concomitant]
     Route: 048
  20. FLEXERIL [Concomitant]
     Route: 048
  21. GLUCOSAMINE [Concomitant]
     Route: 065
  22. PREVACID [Concomitant]
     Route: 065
  23. NITROGLYCERIN [Concomitant]
     Route: 065

REACTIONS (36)
  - ACUTE SINUSITIS [None]
  - ANGINA PECTORIS [None]
  - BLADDER DISORDER [None]
  - BRONCHITIS ACUTE [None]
  - CHEST PAIN [None]
  - CORONARY ARTERY DISEASE [None]
  - DEPRESSION [None]
  - DIABETIC RETINOPATHY [None]
  - DIARRHOEA [None]
  - DIZZINESS [None]
  - DYSPHAGIA [None]
  - DYSPNOEA EXERTIONAL [None]
  - ELECTROCARDIOGRAM ABNORMAL [None]
  - FLUSHING [None]
  - GASTROENTERITIS [None]
  - INFECTED INSECT BITE [None]
  - LOSS OF CONSCIOUSNESS [None]
  - MUSCULOSKELETAL CHEST PAIN [None]
  - MYOCARDIAL ISCHAEMIA [None]
  - NAUSEA [None]
  - NO THERAPEUTIC RESPONSE [None]
  - NON-CARDIAC CHEST PAIN [None]
  - OTITIS MEDIA [None]
  - POLLAKIURIA [None]
  - POST-TRAUMATIC STRESS DISORDER [None]
  - RENAL DISORDER [None]
  - RETINAL DISORDER [None]
  - ROTATOR CUFF SYNDROME [None]
  - SLEEP DISORDER [None]
  - STOMACH DISCOMFORT [None]
  - TEMPERATURE INTOLERANCE [None]
  - TENOSYNOVITIS [None]
  - UPPER RESPIRATORY TRACT INFECTION [None]
  - URINARY TRACT INFECTION [None]
  - VOMITING [None]
  - WEIGHT INCREASED [None]
